FAERS Safety Report 24576058 (Version 1)
Quarter: 2024Q4

REPORT INFORMATION
  Report Type: Spontaneous
  Country: KR (occurrence: KR)
  Receive Date: 20241104
  Receipt Date: 20241104
  Transmission Date: 20250115
  Serious: Yes (Other)
  Sender: NOVARTIS
  Company Number: KR-002147023-NVSC2024KR209993

PATIENT
  Age: 48 Year
  Sex: Male
  Weight: 61 kg

DRUGS (12)
  1. CYCLOSPORINE [Suspect]
     Active Substance: CYCLOSPORINE
     Indication: Product used for unknown indication
     Dosage: UNK
     Route: 065
  2. METHOTREXATE [Concomitant]
     Active Substance: METHOTREXATE
     Indication: Prophylaxis
     Dosage: 19.5 MG, QD
     Route: 065
     Dates: start: 20211123, end: 20211203
  3. CYCLOPHOSPHAMIDE [Concomitant]
     Active Substance: CYCLOPHOSPHAMIDE
     Indication: Routine health maintenance
     Dosage: 3000 MG, QD
     Route: 065
     Dates: start: 20211117, end: 20211120
  4. ACYCLOVIR [Concomitant]
     Active Substance: ACYCLOVIR
     Indication: Infection prophylaxis
     Dosage: 750 MG, QD
     Route: 065
     Dates: start: 20211115, end: 20211121
  5. CYCLOSPORINE [Concomitant]
     Active Substance: CYCLOSPORINE
     Indication: Prophylaxis
     Dosage: 150 MG, QD
     Route: 065
     Dates: start: 20211121, end: 20211203
  6. CYCLOSPORINE [Concomitant]
     Active Substance: CYCLOSPORINE
     Indication: Prophylaxis against graft versus host disease
     Dosage: 175 MG, QD
     Route: 065
     Dates: start: 20211203
  7. LEVOFLOXACIN [Concomitant]
     Active Substance: LEVOFLOXACIN
     Indication: Infection prophylaxis
     Dosage: 500 MG, QD
     Route: 065
     Dates: start: 20211113, end: 20211121
  8. ALPROSTADIL [Concomitant]
     Active Substance: ALPROSTADIL
     Indication: Prophylaxis
     Dosage: 6 MG, QD
     Route: 065
     Dates: start: 20211115, end: 20211205
  9. AMLODIPINE BESYLATE [Concomitant]
     Active Substance: AMLODIPINE BESYLATE
     Indication: Hypertension
     Dosage: 5 MG, QD
     Route: 065
     Dates: start: 20211123
  10. URSODIOL [Concomitant]
     Active Substance: URSODIOL
     Indication: Prophylaxis
     Dosage: 1 MG, QD
     Route: 065
     Dates: start: 20211113, end: 20211216
  11. FOLIC ACID [Concomitant]
     Active Substance: FOLIC ACID
     Indication: Aplastic anaemia
     Dosage: 2 MG, QD
     Route: 065
     Dates: start: 202105, end: 20211120
  12. LOSARTAN POTASSIUM [Concomitant]
     Active Substance: LOSARTAN POTASSIUM
     Indication: Hypertension
     Dosage: 50 MG, QD
     Route: 065
     Dates: start: 20211123

REACTIONS (3)
  - Delirium [Recovered/Resolved]
  - Dysuria [Recovered/Resolved]
  - Rash [Recovered/Resolved]

NARRATIVE: CASE EVENT DATE: 20211126
